FAERS Safety Report 7601460-5 (Version None)
Quarter: 2011Q3

REPORT INFORMATION
  Report Type: 
  Country: None (occurrence: None)
  Receive Date: 20110711
  Receipt Date: 20110705
  Transmission Date: 20111222
  Serious: Yes (Other)
  Sender: FDA-Public Use
  Company Number: CH-PFIZER INC-2011149606

PATIENT
  Age: 65 Year
  Sex: Male

DRUGS (1)
  1. SUTENT [Suspect]
     Indication: METASTATIC RENAL CELL CARCINOMA
     Dosage: 50 MG, 1X/DAY, 4 WKS FOLLOWED BY 2 WKS BREAK
     Dates: start: 20070501

REACTIONS (3)
  - DISEASE PROGRESSION [None]
  - METASTATIC RENAL CELL CARCINOMA [None]
  - CARDIOTOXICITY [None]
